FAERS Safety Report 21151647 (Version 1)
Quarter: 2022Q3

REPORT INFORMATION
  Report Type: Spontaneous
  Country: FR (occurrence: FR)
  Receive Date: 20220730
  Receipt Date: 20220730
  Transmission Date: 20221027
  Serious: Yes (Hospitalization)
  Sender: FDA-Public Use
  Company Number: None

PATIENT
  Age: 91 Year
  Sex: Female

DRUGS (4)
  1. METHOTREXATE [Suspect]
     Active Substance: METHOTREXATE
     Dates: start: 20220213, end: 20220213
  2. ATENOLOL [Suspect]
     Active Substance: ATENOLOL
     Dosage: STRENGTH: 100 MG, SCORED TABLET
     Dates: start: 20220213, end: 20220213
  3. POTASSIUM CHLORIDE [Suspect]
     Active Substance: POTASSIUM CHLORIDE
     Indication: Prescription drug used without a prescription
     Dosage: CAPSULE
     Dates: start: 20220213, end: 20220213
  4. HYDROCHLOROTHIAZIDE\IRBESARTAN [Suspect]
     Active Substance: HYDROCHLOROTHIAZIDE\IRBESARTAN
     Indication: Prescription drug used without a prescription
     Dosage: STRENGTH: 150 MG/ 12.5 MG
     Dates: start: 20220213, end: 20220213

REACTIONS (2)
  - Bradycardia [Recovered/Resolved]
  - Wrong product administered [Unknown]

NARRATIVE: CASE EVENT DATE: 20220213
